FAERS Safety Report 7184105-0 (Version None)
Quarter: 2010Q4

REPORT INFORMATION
  Report Type: 
  Country: None (occurrence: None)
  Receive Date: 20101222
  Receipt Date: 20101213
  Transmission Date: 20110411
  Serious: Yes (Hospitalization, Other)
  Sender: FDA-Public Use
  Company Number: FI-ASTRAZENECA-2010SE38024

PATIENT
  Sex: Female

DRUGS (6)
  1. SEROQUEL [Suspect]
     Indication: SCHIZOPHRENIA
     Route: 048
  2. SEROQUEL [Interacting]
     Route: 048
  3. SEROQUEL [Interacting]
     Route: 048
  4. SEROQUEL [Interacting]
     Route: 048
  5. CIPRALEX [Interacting]
     Route: 065
  6. ABILIFY [Concomitant]

REACTIONS (4)
  - ELECTROCARDIOGRAM QT PROLONGED [None]
  - LEUKOPENIA [None]
  - POTENTIATING DRUG INTERACTION [None]
  - PSYCHOTIC DISORDER [None]
